FAERS Safety Report 7099968-7 (Version None)
Quarter: 2010Q4

REPORT INFORMATION
  Report Type: 
  Country: None (occurrence: None)
  Receive Date: 20101104
  Receipt Date: 20101026
  Transmission Date: 20110411
  Serious: Yes (Hospitalization)
  Sender: FDA-Public Use
  Company Number: ABCOB-10-0531

PATIENT
  Age: 65 Year
  Sex: Male
  Weight: 170.2 kg

DRUGS (13)
  1. ABRAXANE [Suspect]
     Indication: PANCREATIC CARCINOMA
     Dosage: (145 MG)
     Dates: start: 20100917
  2. ERLOTINIB HYDROCHLORIDE [Suspect]
     Indication: PANCREATIC CARCINOMA
     Dosage: (100 MG), ORAL
     Route: 048
     Dates: start: 20100917
  3. ACTOS [Concomitant]
  4. GLYBURIDE (GLIENCLAMIDE) [Concomitant]
  5. LISINOPRIL [Concomitant]
  6. SIMVASTATIN [Concomitant]
  7. CREON (PANCRELIPASE) [Concomitant]
  8. MORPHINE SULFATE INJ [Concomitant]
  9. LORTAB (VICODIN) [Concomitant]
  10. PEPCID [Concomitant]
  11. PROCHLORPERAZINE MALEATE [Concomitant]
  12. ONDANSETRON [Concomitant]
  13. NORTRIPTYLINE HCL [Concomitant]

REACTIONS (7)
  - DEHYDRATION [None]
  - DUODENAL OBSTRUCTION [None]
  - DUODENAL ULCER [None]
  - FATIGUE [None]
  - HYPERBILIRUBINAEMIA [None]
  - HYPOPHAGIA [None]
  - OESOPHAGITIS [None]
